FAERS Safety Report 20931913 (Version 2)
Quarter: 2022Q3

REPORT INFORMATION
  Report Type: Report from Study
  Country: LB (occurrence: LB)
  Receive Date: 20220608
  Receipt Date: 20220625
  Transmission Date: 20221027
  Serious: Yes (Other)
  Sender: FDA-Public Use
  Company Number: LB-NOVARTISPH-NVSC2022LB124318

PATIENT
  Age: 56 Year
  Sex: Female
  Weight: 79 kg

DRUGS (1)
  1. HYRIMOZ [Suspect]
     Active Substance: ADALIMUMAB-ADAZ
     Indication: Axial spondyloarthritis
     Dosage: 40 MG
     Route: 058
     Dates: start: 202109, end: 202203

REACTIONS (4)
  - Oxygen saturation decreased [Recovered/Resolved]
  - Hypocalcaemia [Recovered/Resolved]
  - Back pain [Recovering/Resolving]
  - Chest pain [Recovering/Resolving]

NARRATIVE: CASE EVENT DATE: 20220301
